FAERS Safety Report 6548870-5 (Version None)
Quarter: 2010Q1

REPORT INFORMATION
  Report Type: 
  Country: None (occurrence: None)
  Receive Date: 20100124
  Receipt Date: 20091123
  Transmission Date: 20100710
  Serious: No
  Sender: FDA-Public Use
  Company Number: US-ALLERGAN-0916316US

PATIENT
  Age: 42 Year
  Sex: Female

DRUGS (2)
  1. RESTASIS [Suspect]
     Indication: DRY EYE
     Dosage: 1 GTT, BID
     Route: 047
  2. ORACEA [Concomitant]

REACTIONS (3)
  - HOT FLUSH [None]
  - RASH [None]
  - THROAT IRRITATION [None]
